FAERS Safety Report 10331560 (Version 3)
Quarter: 2015Q1

REPORT INFORMATION
  Report Type: Spontaneous
  Country: JP (occurrence: JP)
  Receive Date: 20140722
  Receipt Date: 20150210
  Transmission Date: 20150720
  Serious: No
  Sender: FDA-Public Use
  Company Number: JP-OTSUKA-JP-2013-16021

PATIENT

DRUGS (6)
  1. SAMSCA [Suspect]
     Active Substance: TOLVAPTAN
     Indication: CARDIAC FAILURE
     Dosage: 3.75 MG MILLIGRAM(S), QD
     Route: 048
     Dates: start: 2013
  2. EXELON [Suspect]
     Active Substance: RIVASTIGMINE TARTRATE
     Dosage: 18 MG MILLIGRAM(S), QD
     Route: 061
     Dates: start: 20131129
  3. SAMSCA [Suspect]
     Active Substance: TOLVAPTAN
     Indication: HYPONATRAEMIA
  4. EXELON [Suspect]
     Active Substance: RIVASTIGMINE TARTRATE
     Dosage: 9 MG MILLIGRAM(S), QD
     Route: 061
     Dates: start: 20131004, end: 20131109
  5. EXELON [Suspect]
     Active Substance: RIVASTIGMINE TARTRATE
     Indication: DEMENTIA
     Dosage: 4.5 MG MILLIGRAM(S), QD
     Route: 061
     Dates: start: 20130910, end: 20131003
  6. EXELON [Suspect]
     Active Substance: RIVASTIGMINE TARTRATE
     Dosage: 13.5 MG MILLIGRAM(S), QD
     Route: 061
     Dates: start: 20131110, end: 20131128

REACTIONS (5)
  - Hyperkalaemia [Recovering/Resolving]
  - Pruritus [Not Recovered/Not Resolved]
  - Dysgeusia [Recovered/Resolved]
  - Dehydration [Unknown]
  - Dry skin [Not Recovered/Not Resolved]

NARRATIVE: CASE EVENT DATE: 20130930
